FAERS Safety Report 20545354 (Version 1)
Quarter: 2022Q1

REPORT INFORMATION
  Report Type: Spontaneous
  Country: FR (occurrence: FR)
  Receive Date: 20220303
  Receipt Date: 20220303
  Transmission Date: 20220423
  Serious: Yes (Hospitalization, Congenital Anomaly, Other)
  Sender: FDA-Public Use
  Company Number: FR-ABBVIE-22K-056-4300482-00

PATIENT
  Sex: Male

DRUGS (2)
  1. VALPROATE SODIUM [Suspect]
     Active Substance: VALPROATE SODIUM
     Indication: Maternal exposure timing unspecified
     Route: 064
  2. PHENOBARBITAL [Suspect]
     Active Substance: PHENOBARBITAL
     Indication: Maternal exposure timing unspecified
     Route: 064

REACTIONS (50)
  - Dysmorphism [Unknown]
  - Kyphosis [Unknown]
  - Eye disorder [Unknown]
  - Hypotonia [Unknown]
  - Psychomotor retardation [Unknown]
  - Developmental delay [Unknown]
  - Cognitive disorder [Unknown]
  - Intellectual disability [Unknown]
  - Learning disability [Unknown]
  - Dysgraphia [Unknown]
  - Hypertelorism [Unknown]
  - Strabismus [Unknown]
  - Generalised tonic-clonic seizure [Unknown]
  - Speech disorder developmental [Unknown]
  - Anger [Unknown]
  - Insomnia [Unknown]
  - Skin wrinkling [Unknown]
  - Stereotypy [Unknown]
  - Epilepsy [Unknown]
  - Developmental coordination disorder [Unknown]
  - Histrionic personality disorder [Unknown]
  - Echolalia [Unknown]
  - Sleep disorder [Unknown]
  - Aggression [Unknown]
  - Communication disorder [Unknown]
  - Personality disorder [Unknown]
  - Injury [Unknown]
  - Disinhibition [Unknown]
  - Impulsive behaviour [Unknown]
  - Tic [Unknown]
  - Coprolalia [Unknown]
  - Obsessive-compulsive disorder [Unknown]
  - Attention deficit hyperactivity disorder [Unknown]
  - Hyporeflexia [Unknown]
  - Nose deformity [Unknown]
  - Personal relationship issue [Unknown]
  - Patient isolation [Unknown]
  - Behaviour disorder [Unknown]
  - Tourette^s disorder [Unknown]
  - Mood altered [Unknown]
  - Reading disorder [Unknown]
  - Disturbance in attention [Unknown]
  - Memory impairment [Unknown]
  - Disorientation [Unknown]
  - Paraphilia [Unknown]
  - Mental impairment [Unknown]
  - Frustration tolerance decreased [Unknown]
  - Electroencephalogram abnormal [Unknown]
  - Scoliosis [Unknown]
  - Foetal exposure during pregnancy [Unknown]

NARRATIVE: CASE EVENT DATE: 19990201
